FAERS Safety Report 21481598 (Version 1)
Quarter: 2022Q4

REPORT INFORMATION
  Report Type: Spontaneous
  Country: GB (occurrence: GB)
  Receive Date: 20221020
  Receipt Date: 20221020
  Transmission Date: 20230113
  Serious: Yes (Hospitalization, Other)
  Sender: FDA-Public Use
  Company Number: GB-BAXTER-2022BAX020760

PATIENT

DRUGS (3)
  1. PIPERACILLIN AND TAZOBACTAM [Suspect]
     Active Substance: PIPERACILLIN SODIUM\TAZOBACTAM SODIUM
     Indication: Product used for unknown indication
     Dosage: 14 X PIPERACILLIN/TAZOBACTAM 13.5G PUMPS
     Route: 065
     Dates: start: 20220923, end: 20220924
  2. SODIUM CHLORIDE [Suspect]
     Active Substance: SODIUM CHLORIDE
     Indication: Medication dilution
     Dosage: 230 MILLILITER
     Route: 042
     Dates: start: 20220923, end: 20220924
  3. SODIUM CITRATE [Suspect]
     Active Substance: SODIUM CITRATE
     Indication: Medication dilution
     Dosage: CITRATE BUFFER
     Route: 065
     Dates: start: 20220923, end: 20220924

REACTIONS (3)
  - Malaise [Unknown]
  - Product sterility issue [Unknown]
  - Poor quality product administered [Unknown]

NARRATIVE: CASE EVENT DATE: 20220923
